FAERS Safety Report 8599669-X (Version None)
Quarter: 2012Q3

REPORT INFORMATION
  Report Type: 
  Country: None (occurrence: None)
  Receive Date: 20120816
  Receipt Date: 20120815
  Transmission Date: 20120928
  Serious: Yes (Hospitalization)
  Sender: FDA-Public Use
  Company Number: US-BAYER-2012-083462

PATIENT
  Age: 57 Year
  Sex: Male

DRUGS (3)
  1. ASPIRIN [Suspect]
  2. ACETAMINOPHEN [Suspect]
  3. GLYBURIDE [Suspect]

REACTIONS (1)
  - HYPOGLYCAEMIA [None]
